FAERS Safety Report 20571801 (Version 1)
Quarter: 2022Q1

REPORT INFORMATION
  Report Type: Spontaneous
  Country: NL (occurrence: NL)
  Receive Date: 20220309
  Receipt Date: 20220309
  Transmission Date: 20220423
  Serious: Yes (Hospitalization)
  Sender: FDA-Public Use
  Company Number: None

PATIENT
  Age: 63 Year
  Sex: Male
  Weight: 50 kg

DRUGS (4)
  1. ALENDRONIC ACID [Suspect]
     Active Substance: ALENDRONIC ACID
     Indication: Osteoporosis
     Dosage: 70MG, FORM STRENGTH: 70MG,BRAND NAME NOT SPECIFIED
     Dates: start: 20210122, end: 20211214
  2. VALPROINEZUUR (ZUUR+NA-ZOUT) / DEPAKINE CHRONOSPHERE GRANULAAT [Concomitant]
     Dosage: THERAPY START DATE AND END DATE: ASKED BUT UNKNOWN, FORM STRENGTH: 250MG
  3. OMEPRAZOL /PEDIPPI [Concomitant]
     Dosage: THERAPY START DATE AND END DATE: ASKED BUT UNKNOWN, FORM STRENGTH: 2MG/ML
  4. FOLIC ACID [Concomitant]
     Active Substance: FOLIC ACID
     Dosage: THERAPY START DATE AND END DATE: ASKED BUT UNKNOWN,BRAND NAME NOT SPECIFIED

REACTIONS (1)
  - Abscess jaw [Recovered/Resolved]

NARRATIVE: CASE EVENT DATE: 20211220
